FAERS Safety Report 25637475 (Version 2)
Quarter: 2025Q3

REPORT INFORMATION
  Report Type: Report from Study
  Country: CA (occurrence: CA)
  Receive Date: 20250804
  Receipt Date: 20250811
  Transmission Date: 20251021
  Serious: Yes (Other)
  Sender: TAKEDA
  Company Number: CA-TAKEDA-2025TUS068470

PATIENT
  Sex: Female

DRUGS (3)
  1. VEDOLIZUMAB [Suspect]
     Active Substance: VEDOLIZUMAB
     Indication: Crohn^s disease
  2. Salofalk [Concomitant]
  3. MESALAMINE [Concomitant]
     Active Substance: MESALAMINE

REACTIONS (2)
  - Crohn^s disease [Unknown]
  - Maternal exposure during breast feeding [Unknown]
